FAERS Safety Report 9010393 (Version 1)
Quarter: 2013Q1

REPORT INFORMATION
  Report Type: Spontaneous
  Country: US (occurrence: US)
  Receive Date: 20130109
  Receipt Date: 20130109
  Transmission Date: 20140127
  Serious: Yes (Death)
  Sender: FDA-Public Use
  Company Number: US-ASTRAZENECA-2013SE01404

PATIENT
  Age: 49 Year
  Sex: Male

DRUGS (5)
  1. METOPROLOL [Suspect]
     Route: 048
  2. AMLODIPINE [Suspect]
     Route: 048
  3. OLMESARTAN [Suspect]
     Route: 048
  4. FLUOXETINE [Suspect]
     Route: 048
  5. CIMETIDINE [Suspect]
     Route: 048

REACTIONS (2)
  - Completed suicide [Fatal]
  - Toxicity to various agents [Fatal]
